FAERS Safety Report 6111840-5 (Version None)
Quarter: 2009Q1

REPORT INFORMATION
  Report Type: 
  Country: None (occurrence: None)
  Receive Date: 20090311
  Receipt Date: 20090227
  Transmission Date: 20090719
  Serious: Yes (Other)
  Sender: FDA-Public Use
  Company Number: JP-PFIZER INC-2009155662

PATIENT

DRUGS (2)
  1. GENOTROPIN [Suspect]
     Indication: PRADER-WILLI SYNDROME
     Dosage: 0.6 MG, 1X/DAY
     Route: 058
     Dates: start: 20040929, end: 20080731
  2. GENOTROPIN [Suspect]
     Dosage: 1.3 MG, 1X/DAY
     Route: 058
     Dates: start: 20080801, end: 20090114

REACTIONS (1)
  - SLEEP APNOEA SYNDROME [None]
